FAERS Safety Report 9440403 (Version 1)
Quarter: 2013Q3

REPORT INFORMATION
  Report Type: Spontaneous
  Country: IT (occurrence: IT)
  Receive Date: 20130805
  Receipt Date: 20130805
  Transmission Date: 20140515
  Serious: Yes (Other)
  Sender: FDA-Public Use
  Company Number: IT-TEVA-416254ISR

PATIENT
  Age: 46 Year
  Sex: Female

DRUGS (7)
  1. FLUOROURACILE TEVA [Suspect]
     Indication: ADENOCARCINOMA OF COLON
     Dosage: 1020MG, CYCLICAL
     Route: 042
     Dates: start: 20130422, end: 20130423
  2. FLUOROURACILE TEVA [Suspect]
     Dosage: 680MG, CYCLICAL
     Route: 040
     Dates: start: 20130422, end: 20130423
  3. IRINOTECAN HOSPIRA [Suspect]
     Indication: ADENOCARCINOMA OF COLON
     Dosage: 306 MG, CONCENTRATE FOR INJECTABLE SOLUTION
     Route: 042
     Dates: start: 20130422, end: 20130422
  4. ERBITUX [Suspect]
     Indication: ADENOCARCINOMA OF COLON
     Dosage: 425MG, CYCLICAL
     Route: 042
     Dates: start: 20130422, end: 20130422
  5. RANIDIL [Concomitant]
     Indication: HYPERCHLORHYDRIA
     Dosage: 50 MILLIGRAM DAILY;
     Route: 042
     Dates: start: 20130422, end: 20130423
  6. ONDANSETRONE HIKMA [Concomitant]
     Indication: PROPHYLAXIS OF NAUSEA AND VOMITING
     Dosage: 8 MILLIGRAM DAILY;
     Route: 042
     Dates: start: 20130422, end: 20130423
  7. SOLDESAM [Concomitant]
     Indication: PROPHYLAXIS OF NAUSEA AND VOMITING
     Dosage: 8 MILLIGRAM DAILY;
     Route: 042
     Dates: start: 20130422, end: 20130423

REACTIONS (13)
  - Pyrexia [Unknown]
  - Abdominal pain [Unknown]
  - Chest pain [Unknown]
  - Epistaxis [Unknown]
  - Skin burning sensation [Unknown]
  - Fatigue [Unknown]
  - Diarrhoea [Unknown]
  - Conjunctivitis [Unknown]
  - Rash [Unknown]
  - Dry skin [Unknown]
  - Sensory loss [Unknown]
  - Gingival bleeding [Unknown]
  - Paraesthesia [Unknown]
